FAERS Safety Report 5255447-0 (Version None)
Quarter: 2007Q1

REPORT INFORMATION
  Report Type: 
  Country: None (occurrence: None)
  Receive Date: 20061201
  Receipt Date: 20060809
  Transmission Date: 20070707
  Serious: No
  Sender: FDA-Public Use
  Company Number: 2006PV019143

PATIENT
  Age: 77 Year
  Sex: Female
  Weight: 87.0906 kg

DRUGS (5)
  1. BYETTA [Suspect]
     Indication: DIABETES MELLITUS NON-INSULIN-DEPENDENT
     Dosage: SEE IMAGE
     Route: 058
     Dates: start: 20060713, end: 20060804
  2. BYETTA [Suspect]
     Indication: DIABETES MELLITUS NON-INSULIN-DEPENDENT
     Dosage: SEE IMAGE
     Route: 058
     Dates: start: 20060713, end: 20060804
  3. GLUCOTROL [Concomitant]
  4. HUMULIN N [Concomitant]
  5. GLUCOPHAGE [Concomitant]

REACTIONS (9)
  - ABDOMINAL PAIN UPPER [None]
  - BLOOD GLUCOSE FLUCTUATION [None]
  - BREAST DISCOMFORT [None]
  - BREAST OEDEMA [None]
  - BREAST PAIN [None]
  - DECREASED APPETITE [None]
  - NAUSEA [None]
  - RETCHING [None]
  - WEIGHT DECREASED [None]
